FAERS Safety Report 4684233-5 (Version None)
Quarter: 2005Q2

REPORT INFORMATION
  Report Type: 
  Country: None (occurrence: None)
  Receive Date: 20050531
  Receipt Date: 20050203
  Transmission Date: 20051028
  Serious: Yes (Hospitalization)
  Sender: FDA-Public Use
  Company Number: 200510896US

PATIENT
  Age: 93 Year
  Sex: Female

DRUGS (1)
  1. LOVENOX [Suspect]
     Indication: LUNG INFILTRATION
     Dosage: 80 MG   SC
     Route: 058

REACTIONS (4)
  - CONTUSION [None]
  - INJECTION SITE HAEMORRHAGE [None]
  - INJECTION SITE NODULE [None]
  - OEDEMA PERIPHERAL [None]
